FAERS Safety Report 8516674-X (Version None)
Quarter: 2012Q2

REPORT INFORMATION
  Report Type: 
  Country: None (occurrence: None)
  Receive Date: 20120406
  Receipt Date: 20101123
  Transmission Date: 20120825
  Serious: Yes (Hospitalization)
  Sender: FDA-Public Use
  Company Number: PHHY2010US79596

PATIENT
  Age: 70 Year
  Sex: Male

DRUGS (1)
  1. TASIGNA [Suspect]
     Indication: CHRONIC MYELOID LEUKAEMIA
     Dosage: 400 MG, BID, ORAL
     Route: 048
     Dates: start: 20100831

REACTIONS (2)
  - BLISTER [None]
  - ORAL HERPES [None]
